FAERS Safety Report 5756543-1 (Version None)
Quarter: 2008Q2

REPORT INFORMATION
  Report Type: 
  Country: None (occurrence: None)
  Receive Date: 20080603
  Receipt Date: 20080519
  Transmission Date: 20081010
  Serious: Yes (Hospitalization, Other)
  Sender: FDA-Public Use
  Company Number: PHEH2006US06680

PATIENT
  Sex: Female
  Weight: 76.19 kg

DRUGS (3)
  1. ESTRADERM [Suspect]
     Indication: MENOPAUSAL SYMPTOMS
     Dosage: UNK, UNK
     Route: 062
     Dates: start: 19910601, end: 20001031
  2. LEVOTHYROXINE SODIUM [Concomitant]
     Indication: HYPOTHYROIDISM
     Dosage: 0.075 MG, QD
     Route: 048
  3. NEXIUM [Concomitant]
     Indication: GASTROOESOPHAGEAL REFLUX DISEASE

REACTIONS (49)
  - ANAEMIA [None]
  - ARTHROPOD BITE [None]
  - ASPIRATION BIOPSY [None]
  - BLOOD CHOLESTEROL INCREASED [None]
  - BREAST CANCER METASTATIC [None]
  - BREAST MASS [None]
  - BREAST PAIN [None]
  - CARDIAC FAILURE CONGESTIVE [None]
  - CELLULITIS [None]
  - CENTRAL VENOUS CATHETERISATION [None]
  - COUGH [None]
  - DEPRESSION [None]
  - DYSPNOEA [None]
  - EJECTION FRACTION [None]
  - ENDOMETRIOSIS [None]
  - FIBROCYSTIC BREAST DISEASE [None]
  - HEADACHE [None]
  - HYSTERECTOMY [None]
  - LUNG DISORDER [None]
  - LUNG INFILTRATION [None]
  - LUNG NEOPLASM [None]
  - LYMPHADENECTOMY [None]
  - MALIGNANT BREAST LUMP REMOVAL [None]
  - MAMMOGRAM [None]
  - MASTECTOMY [None]
  - METASTASES TO LUNG [None]
  - MIGRAINE [None]
  - MUSCLE SPASMS [None]
  - NAUSEA [None]
  - NECK INJURY [None]
  - PAIN [None]
  - PANCYTOPENIA [None]
  - PHARYNGOLARYNGEAL PAIN [None]
  - PITUITARY TUMOUR BENIGN [None]
  - PITUITARY TUMOUR REMOVAL [None]
  - PULMONARY ARTERY THROMBOSIS [None]
  - PULMONARY INFARCTION [None]
  - PYREXIA [None]
  - RADIATION THYROIDITIS [None]
  - RADIOTHERAPY [None]
  - SALPINGO-OOPHORECTOMY BILATERAL [None]
  - SEROMA [None]
  - SINUS DISORDER [None]
  - SINUS POLYP [None]
  - STAPHYLOCOCCAL SEPSIS [None]
  - THROMBOCYTOPENIA [None]
  - ULTRASOUND BREAST ABNORMAL [None]
  - VENA CAVA FILTER INSERTION [None]
  - VOMITING [None]
